FAERS Safety Report 7729703-8 (Version None)
Quarter: 2011Q3

REPORT INFORMATION
  Report Type: 
  Country: None (occurrence: None)
  Receive Date: 20110901
  Receipt Date: 20110901
  Transmission Date: 20111222
  Serious: Yes (Disabling)
  Sender: FDA-Public Use
  Company Number: None

PATIENT
  Age: 65 Year
  Sex: Female
  Weight: 72.5755 kg

DRUGS (2)
  1. ABILIFY [Suspect]
     Indication: DEPRESSION
     Dosage: 1 A DAY, PO
     Route: 048
     Dates: start: 20110730, end: 20110812
  2. CYMBALTA [Concomitant]

REACTIONS (1)
  - TARDIVE DYSKINESIA [None]
